FAERS Safety Report 5324107-X (Version None)
Quarter: 2007Q2

REPORT INFORMATION
  Report Type: 
  Country: None (occurrence: None)
  Receive Date: 20070514
  Receipt Date: 20060517
  Transmission Date: 20071010
  Serious: No
  Sender: FDA-Public Use
  Company Number: A0606060A

PATIENT
  Age: 64 Year
  Sex: Male

DRUGS (6)
  1. NABUMETONE [Suspect]
     Dosage: 500MG FOUR TIMES PER DAY
     Route: 065
  2. ZOCOR [Concomitant]
  3. MAXZIDE [Concomitant]
  4. LANOXIN [Concomitant]
  5. TOPROL-XL [Concomitant]
  6. NORVASC [Concomitant]

REACTIONS (1)
  - DRUG INEFFECTIVE [None]
